FAERS Safety Report 9547036 (Version 2)
Quarter: 2013Q3

REPORT INFORMATION
  Report Type: Spontaneous
  Country: US (occurrence: None)
  Receive Date: 20130606
  Receipt Date: 20130906
  Transmission Date: 20140515
  Serious: Yes (Hospitalization, Disabling, Other)
  Sender: FDA-Public Use
  Company Number: 163-POMAL-13044479

PATIENT
  Age: 56 Year
  Sex: Male

DRUGS (3)
  1. POMALYST [Suspect]
     Indication: PLASMA CELL MYELOMA
     Route: 048
     Dates: start: 20130404
  2. TRYOPOLIS (OTHER THERAPEUTIC PRODUCTS) [Concomitant]
  3. RED BLOOD CELLS (RED BLOOD CELLS) (INJECTION FOR INFUSION) [Concomitant]

REACTIONS (8)
  - Anaemia [None]
  - Drug ineffective [None]
  - Epistaxis [None]
  - Nasal dryness [None]
  - Platelet disorder [None]
  - Platelet count decreased [None]
  - Dyspnoea exertional [None]
  - White blood cell count decreased [None]
